FAERS Safety Report 9364210 (Version 2)
Quarter: 2013Q3

REPORT INFORMATION
  Report Type: Report from Study
  Country: US (occurrence: US)
  Receive Date: 20130624
  Receipt Date: 20130702
  Transmission Date: 20140515
  Serious: Yes (Hospitalization)
  Sender: FDA-Public Use
  Company Number: US-ACTELION-A-NJ2013-83738

PATIENT
  Age: 65 Year
  Sex: Female

DRUGS (3)
  1. VENTAVIS [Suspect]
     Indication: PULMONARY ARTERIAL HYPERTENSION
     Dosage: UNK
     Route: 055
     Dates: end: 2013
  2. VENTAVIS [Suspect]
     Dosage: UNK
     Route: 055
     Dates: start: 2013, end: 2013
  3. SILDENAFIL [Concomitant]

REACTIONS (3)
  - Dehydration [Recovering/Resolving]
  - Blood potassium decreased [Recovering/Resolving]
  - Diarrhoea [Recovering/Resolving]
